FAERS Safety Report 13740521 (Version 1)
Quarter: 2017Q3

REPORT INFORMATION
  Report Type: Spontaneous
  Country: US (occurrence: US)
  Receive Date: 20170710
  Receipt Date: 20170710
  Transmission Date: 20171127
  Serious: No
  Sender: FDA-Public Use
  Company Number: None

PATIENT
  Age: 70 Year
  Sex: Female
  Weight: 84.6 kg

DRUGS (1)
  1. VANCOMYCIN [Suspect]
     Active Substance: VANCOMYCIN
     Indication: CELLULITIS
     Dosage: ?          OTHER DOSE:GM;?
     Route: 041
     Dates: start: 20170428, end: 20170428

REACTIONS (2)
  - Pruritus generalised [None]
  - Discomfort [None]

NARRATIVE: CASE EVENT DATE: 20170428
